FAERS Safety Report 24856671 (Version 1)
Quarter: 2025Q1

REPORT INFORMATION
  Report Type: Spontaneous
  Country: US (occurrence: None)
  Receive Date: 20250116
  Receipt Date: 20250116
  Transmission Date: 20250409
  Serious: Yes (Hospitalization)
  Sender: FDA-CTU
  Company Number: None

PATIENT
  Age: 27 Year
  Sex: Female
  Weight: 47 kg

DRUGS (1)
  1. BOTULINUM TOXIN TYPE A [Suspect]
     Active Substance: BOTULINUM TOXIN TYPE A
     Dates: start: 20250111, end: 20250111

REACTIONS (5)
  - Palpitations [None]
  - Chest discomfort [None]
  - Oropharyngeal discomfort [None]
  - Post procedural complication [None]
  - Product use in unapproved indication [None]

NARRATIVE: CASE EVENT DATE: 20250111
